FAERS Safety Report 8302728 (Version 2)
Quarter: 2012Q4

REPORT INFORMATION
  Report Type: 
  Country: US (occurrence: US)
  Receive Date: 20111220
  Receipt Date: 20120829
  Transmission Date: 20130627
  Serious: Yes (Hospitalization)
  Sender: FDA-Public Use
  Company Number: US-GLAXOSMITHKLINE-A0893257A

PATIENT
  Age: 67 Year
  Sex: Male
  Weight: 140.9 kg

DRUGS (1)
  1. AVANDIA [Suspect]
     Indication: TYPE 2 DIABETES MELLITUS
     Route: 048
     Dates: start: 2003, end: 20080918

REACTIONS (2)
  - Cardiac failure congestive [Not Recovered/Not Resolved]
  - Diastolic dysfunction [Unknown]
